FAERS Safety Report 4978496-6 (Version None)
Quarter: 2006Q2

REPORT INFORMATION
  Report Type: 
  Country: None (occurrence: None)
  Receive Date: 20060420
  Receipt Date: 20060412
  Transmission Date: 20061013
  Serious: Yes (Other)
  Sender: FDA-Public Use
  Company Number: DE-ABBOTT-06P-062-0330666-00

PATIENT
  Sex: Male
  Weight: 59 kg

DRUGS (9)
  1. HUMIRA [Suspect]
     Indication: RHEUMATOID ARTHRITIS
     Route: 058
     Dates: start: 20031104, end: 20050712
  2. HUMIRA [Suspect]
     Dates: start: 20060209
  3. METHOTREXATE SODIUM [Concomitant]
     Indication: RHEUMATOID ARTHRITIS
     Dates: start: 19990712
  4. PECOU RA [Concomitant]
     Indication: RHEUMATOID ARTHRITIS
     Dates: start: 19991111
  5. PREDNISOLONE [Concomitant]
     Indication: RHEUMATOID ARTHRITIS
     Dates: start: 19990611
  6. DREISATOL [Concomitant]
     Indication: RHEUMATOID ARTHRITIS
     Dates: start: 19990614
  7. DICLOFENAC SODIUM [Concomitant]
     Indication: RHEUMATOID ARTHRITIS
     Dates: start: 19990614
  8. HUMIRA [Concomitant]
     Indication: RHEUMATOID ARTHRITIS
     Dates: start: 20060209
  9. ISONIAZID [Concomitant]
     Indication: PROPHYLAXIS
     Route: 055
     Dates: start: 20060130

REACTIONS (1)
  - PULMONARY MASS [None]
